FAERS Safety Report 14957887 (Version 1)
Quarter: 2018Q2

REPORT INFORMATION
  Report Type: Report from Study
  Country: ES (occurrence: ES)
  Receive Date: 20180531
  Receipt Date: 20180531
  Transmission Date: 20180711
  Serious: Yes (Other)
  Sender: FDA-Public Use
  Company Number: ES-PFIZER INC-2018215784

PATIENT
  Age: 39 Year

DRUGS (2)
  1. PACLITAXEL. [Suspect]
     Active Substance: PACLITAXEL
     Indication: BREAST CANCER
     Dosage: 80 MG/M2, UNK
     Route: 042
     Dates: start: 20170322
  2. BEVACIZUMAB. [Suspect]
     Active Substance: BEVACIZUMAB
     Indication: BREAST CANCER
     Dosage: 10 MG/KG, UNK
     Route: 042
     Dates: start: 20170322

REACTIONS (8)
  - Embolism [Recovered/Resolved]
  - Epistaxis [Recovered/Resolved]
  - Hypertriglyceridaemia [Recovered/Resolved]
  - Alopecia [Recovered/Resolved]
  - Hyperglycaemia [Recovering/Resolving]
  - Diarrhoea [Recovered/Resolved with Sequelae]
  - Skin ulcer [Recovered/Resolved]
  - Paraesthesia [Recovering/Resolving]

NARRATIVE: CASE EVENT DATE: 20170322
